FAERS Safety Report 6049713-9 (Version None)
Quarter: 2009Q1

REPORT INFORMATION
  Report Type: 
  Country: None (occurrence: None)
  Receive Date: 20090121
  Receipt Date: 20080327
  Transmission Date: 20090719
  Serious: Yes (Life-Threatening, Other)
  Sender: FDA-Public Use
  Company Number: HQWYE150923JUL03

PATIENT
  Sex: Female

DRUGS (2)
  1. PREMPHASE 14/14 [Suspect]
     Dosage: 0.625MG/5MG DAILY, ORAL
     Route: 048
     Dates: end: 19990101
  2. ESTRACE [Suspect]
     Dosage: UNSPECIFIED DOSE DAILY, ORAL
     Route: 048
     Dates: end: 19990101

REACTIONS (1)
  - BREAST CANCER FEMALE [None]
